FAERS Safety Report 17735511 (Version 1)
Quarter: 2020Q2

REPORT INFORMATION
  Report Type: Spontaneous
  Country: US (occurrence: US)
  Receive Date: 20200501
  Receipt Date: 20200501
  Transmission Date: 20200714
  Serious: No
  Sender: FDA-Public Use
  Company Number: US-ASTRAZENECA-2020SE57868

PATIENT
  Age: 75 Year
  Sex: Male

DRUGS (1)
  1. BYDUREON BCISE [Suspect]
     Active Substance: EXENATIDE
     Dosage: SECOND DOSE WAS IN 2020 ON AN UNKNOWN DATE, ONCE A WEEK
     Route: 065

REACTIONS (4)
  - Injection site pain [Unknown]
  - Device leakage [Unknown]
  - Wrong technique in device usage process [Unknown]
  - Intentional device misuse [Unknown]

NARRATIVE: CASE EVENT DATE: 2020
